FAERS Safety Report 5646652-X (Version None)
Quarter: 2008Q1

REPORT INFORMATION
  Report Type: 
  Country: None (occurrence: None)
  Receive Date: 20080303
  Receipt Date: 20080222
  Transmission Date: 20080703
  Serious: Yes (Other)
  Sender: FDA-Public Use
  Company Number: PHBS2008ZA02541

PATIENT
  Sex: Male

DRUGS (1)
  1. RITALIN [Suspect]
     Dosage: 300 MG/DAY

REACTIONS (3)
  - EJACULATION DISORDER [None]
  - OVERDOSE [None]
  - URINARY RETENTION [None]
